FAERS Safety Report 5310334-4 (Version None)
Quarter: 2007Q2

REPORT INFORMATION
  Report Type: 
  Country: None (occurrence: None)
  Receive Date: 20070427
  Receipt Date: 20070424
  Transmission Date: 20071010
  Serious: Yes (Death)
  Sender: FDA-Public Use
  Company Number: IT-BRISTOL-MYERS SQUIBB COMPANY-13739990

PATIENT
  Age: 70 Year
  Sex: Female

DRUGS (2)
  1. DASATINIB [Suspect]
     Indication: MALIGNANT MELANOMA
     Dates: start: 20061219, end: 20070321
  2. COUMADIN [Concomitant]
     Dates: start: 20060101, end: 20070327

REACTIONS (1)
  - SUDDEN DEATH [None]
